FAERS Safety Report 4722016-8 (Version None)
Quarter: 2005Q3

REPORT INFORMATION
  Report Type: 
  Country: None (occurrence: None)
  Receive Date: 20050720
  Receipt Date: 20050707
  Transmission Date: 20060218
  Serious: Yes (Hospitalization)
  Sender: FDA-Public Use
  Company Number: 2005BI007008

PATIENT
  Age: 38 Year
  Sex: Female

DRUGS (2)
  1. AVONEX [Suspect]
     Indication: SYSTEMIC LUPUS ERYTHEMATOSUS
     Dosage: 30 UG; QW; IM
     Route: 030
     Dates: start: 20010101
  2. AVONEX [Suspect]
     Indication: SYSTEMIC LUPUS ERYTHEMATOSUS
     Dosage: 30 UG;QW;IM
     Route: 030
     Dates: start: 20040206

REACTIONS (2)
  - ARTHRALGIA [None]
  - SYSTEMIC LUPUS ERYTHEMATOSUS [None]
